FAERS Safety Report 5251698-X (Version None)
Quarter: 2007Q1

REPORT INFORMATION
  Report Type: 
  Country: None (occurrence: None)
  Receive Date: 20070228
  Receipt Date: 20061013
  Transmission Date: 20070707
  Serious: No
  Sender: FDA-Public Use
  Company Number: US-GLAXOSMITHKLINE-A0623560A

PATIENT
  Age: 55 Year
  Sex: Female

DRUGS (2)
  1. LAMICTAL [Suspect]
     Indication: BIPOLAR DISORDER
     Dosage: 50MG IN THE MORNING
     Route: 048
  2. SYNTHROID [Concomitant]

REACTIONS (5)
  - OEDEMA MOUTH [None]
  - PRURITUS GENITAL [None]
  - RASH [None]
  - RASH GENERALISED [None]
  - SWOLLEN TONGUE [None]
